FAERS Safety Report 11602927 (Version 4)
Quarter: 2015Q4

REPORT INFORMATION
  Report Type: Spontaneous
  Country: US (occurrence: None)
  Receive Date: 20151005
  Receipt Date: 20151022
  Transmission Date: 20160304
  Serious: Yes (Death)
  Sender: FDA-Public Use
  Company Number: 1713747-2015-999356

PATIENT
  Age: 65 Year
  Sex: Female

DRUGS (1)
  1. DELFLEX [Suspect]
     Active Substance: CALCIUM CHLORIDE\DEXTROSE MONOHYDRATE\MAGNESIUM CHLORIDE\SODIUM CHLORIDE\SODIUM LACTATE
     Indication: CHRONIC KIDNEY DISEASE
     Route: 033
     Dates: start: 20130520, end: 20150902

REACTIONS (12)
  - Vomiting [None]
  - Pneumonia aspiration [None]
  - Pulse absent [None]
  - Nausea [None]
  - Condition aggravated [None]
  - General physical health deterioration [None]
  - Pyrexia [None]
  - Respiratory arrest [None]
  - Hyporesponsive to stimuli [None]
  - Lethargy [None]
  - Nutritional condition abnormal [None]
  - Dysphagia [None]

NARRATIVE: CASE EVENT DATE: 20150906
